FAERS Safety Report 6626291-4 (Version None)
Quarter: 2010Q1

REPORT INFORMATION
  Report Type: 
  Country: None (occurrence: None)
  Receive Date: 20100310
  Receipt Date: 20090519
  Transmission Date: 20100710
  Serious: No
  Sender: FDA-Public Use
  Company Number: US-ABBOTT-09P-163-0502365-00

PATIENT
  Sex: Male
  Weight: 74.91 kg

DRUGS (7)
  1. LUPRON DEPOT [Suspect]
     Indication: CRYOTHERAPY
     Route: 030
     Dates: start: 20081003, end: 20081003
  2. LUPRON DEPOT [Suspect]
     Indication: PROSTATIC DISORDER
  3. PERCOCET [Concomitant]
     Indication: LYMPHOMA
     Route: 048
  4. LORAZEPAM [Concomitant]
     Indication: DRUG USE FOR UNKNOWN INDICATION
     Route: 048
  5. LEVOXYL [Concomitant]
     Indication: THYROID DISORDER
     Route: 048
  6. OMEPRAZOLE [Concomitant]
     Indication: GASTROOESOPHAGEAL REFLUX DISEASE
     Route: 048
  7. PREDNISONE [Concomitant]
     Indication: RED BLOOD CELL SEDIMENTATION RATE INCREASED

REACTIONS (4)
  - HOT FLUSH [None]
  - HYPERHIDROSIS [None]
  - MIDDLE INSOMNIA [None]
  - WEIGHT INCREASED [None]
